FAERS Safety Report 8790041 (Version 1)
Quarter: 2012Q4

REPORT INFORMATION
  Report Type: 
  Country: JP (occurrence: JP)
  Receive Date: 20120917
  Receipt Date: 20120917
  Transmission Date: 20130627
  Serious: Yes (Hospitalization)
  Sender: FDA-Public Use
  Company Number: JP-NOVOPROD-359328

PATIENT
  Age: 63 Year
  Sex: Male
  Weight: 56 kg

DRUGS (8)
  1. VICTOZA HIKACHU INJECTION [Suspect]
     Indication: TYPE 2 DIABETES MELLITUS
     Dosage: UNK
     Route: 065
     Dates: start: 20110214
  2. VICTOZA HIKACHU INJECTION [Suspect]
     Dosage: 0.3 mg, qd
     Route: 058
     Dates: start: 20120215
  3. VICTOZA HIKACHU INJECTION [Suspect]
     Dosage: 0.6 mg, qd
     Route: 058
  4. VICTOZA HIKACHU INJECTION [Suspect]
     Dosage: 0.9 mg, qd
     Route: 058
  5. DORNER [Concomitant]
     Dosage: 60 UNK, UNK
     Route: 048
     Dates: start: 20071214, end: 20120622
  6. PRORENAL [Concomitant]
     Dosage: 30 UNK, UNK
     Route: 048
     Dates: start: 20081210
  7. KETOPROFEN [Concomitant]
     Dosage: 80 mg, tid
     Dates: start: 20090518
  8. GLYCYRRHIZA POWDER COMBINED DRUG [Concomitant]
     Dosage: 3.9mg/PO
     Dates: start: 20110228

REACTIONS (1)
  - Interstitial lung disease [Not Recovered/Not Resolved]
